FAERS Safety Report 13550101 (Version 1)
Quarter: 2017Q2

REPORT INFORMATION
  Report Type: Spontaneous
  Country: US (occurrence: US)
  Receive Date: 20170516
  Receipt Date: 20170516
  Transmission Date: 20170830
  Serious: Yes (Other)
  Sender: FDA-Public Use
  Company Number: US-OTSUKA-2017_010645

PATIENT

DRUGS (6)
  1. DECITABINE. [Suspect]
     Active Substance: DECITABINE
     Indication: CHRONIC MYELOMONOCYTIC LEUKAEMIA
  2. DECITABINE. [Suspect]
     Active Substance: DECITABINE
     Indication: ACUTE MYELOID LEUKAEMIA
     Dosage: 20 MG/M2 ON DAYS 3-12 DURING INDUCTION CYCLES AND ON DAYS 3-7 DURING MAINTENANCE CYCLES
     Route: 042
  3. THIOGUANINE [Suspect]
     Active Substance: THIOGUANINE
     Indication: ACUTE MYELOID LEUKAEMIA
     Dosage: 80 MG/M2, IN 1 DAY
     Route: 065
  4. THIOGUANINE [Suspect]
     Active Substance: THIOGUANINE
     Indication: CHRONIC MYELOMONOCYTIC LEUKAEMIA
  5. THIOGUANINE [Suspect]
     Active Substance: THIOGUANINE
     Indication: MYELODYSPLASTIC SYNDROME
  6. DECITABINE. [Suspect]
     Active Substance: DECITABINE
     Indication: MYELODYSPLASTIC SYNDROME

REACTIONS (1)
  - Acute kidney injury [Unknown]
